FAERS Safety Report 17223645 (Version 1)
Quarter: 2020Q1

REPORT INFORMATION
  Report Type: Spontaneous
  Country: NO (occurrence: NO)
  Receive Date: 20200102
  Receipt Date: 20200102
  Transmission Date: 20200409
  Serious: Yes (Other)
  Sender: FDA-Public Use
  Company Number: NO-TEVA-2019-NO-1159735

PATIENT
  Sex: Female

DRUGS (4)
  1. ADALAT [Suspect]
     Active Substance: NIFEDIPINE
     Route: 065
  2. PANTOPRAZOL (PANTOPRAZOLE) [Suspect]
     Active Substance: PANTOPRAZOLE
     Route: 065
  3. LAMICTAL [Suspect]
     Active Substance: LAMOTRIGINE
     Route: 065
  4. CANDESARTAN. [Suspect]
     Active Substance: CANDESARTAN
     Route: 065

REACTIONS (1)
  - Urinary retention [Unknown]
